FAERS Safety Report 24126738 (Version 1)
Quarter: 2024Q3

REPORT INFORMATION
  Report Type: Spontaneous
  Country: PL (occurrence: PL)
  Receive Date: 20240723
  Receipt Date: 20240723
  Transmission Date: 20241017
  Serious: Yes (Life-Threatening, Other)
  Sender: FRESENIUS KABI
  Company Number: None

PATIENT
  Age: 32 Year
  Sex: Female
  Weight: 73 kg

DRUGS (5)
  1. LIDOCAINE HYDROCHLORIDE [Suspect]
     Active Substance: LIDOCAINE HYDROCHLORIDE
     Indication: Epidural test dose
     Dosage: 2ML 2%
     Dates: start: 20230317, end: 20230317
  2. ATROPINE [Suspect]
     Active Substance: ATROPINE
     Indication: Bradycardia
     Dosage: 0.5MG X1
     Route: 042
     Dates: start: 20230317, end: 20230317
  3. EPHEDRINE [Suspect]
     Active Substance: EPHEDRINE
     Indication: Bradycardia
     Dosage: 10MG X 2
     Route: 042
     Dates: start: 20230317, end: 20230317
  4. FENTANYL [Suspect]
     Active Substance: FENTANYL\FENTANYL CITRATE
     Indication: Epidural anaesthesia
     Route: 008
     Dates: start: 20230317, end: 20230317
  5. ROPIVACAINE HYDROCHLORIDE [Suspect]
     Active Substance: ROPIVACAINE HYDROCHLORIDE
     Indication: Epidural anaesthesia
     Dosage: 10ML 0.2%
     Route: 008
     Dates: start: 20230317, end: 20230317

REACTIONS (5)
  - Rash macular [Recovered/Resolved]
  - Altered state of consciousness [Recovered/Resolved]
  - Tinnitus [Recovered/Resolved]
  - Bradycardia [Recovered/Resolved]
  - Exposure during pregnancy [Unknown]

NARRATIVE: CASE EVENT DATE: 20230317
